FAERS Safety Report 21548679 (Version 1)
Quarter: 2022Q4

REPORT INFORMATION
  Report Type: Spontaneous
  Country: FR (occurrence: FR)
  Receive Date: 20221103
  Receipt Date: 20221103
  Transmission Date: 20230113
  Serious: Yes (Other)
  Sender: FDA-Public Use
  Company Number: FR-Eisai Europe Ltd-EC-2022-126369

PATIENT
  Sex: Male

DRUGS (2)
  1. VALIUM [Suspect]
     Active Substance: DIAZEPAM
     Indication: Agitation
     Dosage: UNKNOWN DOSE
     Route: 050
     Dates: start: 20221018, end: 20221018
  2. LOXAPINE [Suspect]
     Active Substance: LOXAPINE
     Indication: Agitation
     Dosage: UNKNOWN DOSE
     Route: 050
     Dates: start: 20221018, end: 20221018

REACTIONS (2)
  - Incorrect route of product administration [Not Recovered/Not Resolved]
  - Joint ankylosis [Not Recovered/Not Resolved]

NARRATIVE: CASE EVENT DATE: 20221019
